FAERS Safety Report 6370894-1 (Version None)
Quarter: 2009Q3

REPORT INFORMATION
  Report Type: 
  Country: None (occurrence: None)
  Receive Date: 20090923
  Receipt Date: 20070904
  Transmission Date: 20100115
  Serious: Yes (Other)
  Sender: FDA-Public Use
  Company Number: US-ASTRAZENECA-2006UW23134

PATIENT
  Age: 34 Year
  Sex: Female
  Weight: 100.2 kg

DRUGS (31)
  1. SEROQUEL [Suspect]
     Route: 048
  2. SEROQUEL [Suspect]
     Dosage: 25 MG - 400 MG
     Route: 048
     Dates: start: 20000327
  3. HALDOL [Concomitant]
  4. RISPERDAL [Concomitant]
  5. THORAZINE [Concomitant]
  6. ZYPREXA [Concomitant]
  7. FLOVENT [Concomitant]
     Dates: start: 19990422
  8. PAXIL [Concomitant]
     Dates: start: 19990712
  9. SEREVENT [Concomitant]
     Dates: start: 19990202
  10. ALBUTEROL [Concomitant]
     Dates: start: 19981215
  11. CLARITIN [Concomitant]
     Dates: start: 20000307
  12. NEURONTIN [Concomitant]
     Dates: start: 20000327
  13. BUSPAR [Concomitant]
     Dates: start: 19990610
  14. CARBAMAZEPINE [Concomitant]
     Dates: start: 19950818
  15. BECONASE [Concomitant]
     Dates: start: 19981124
  16. TRAZODONE [Concomitant]
     Dates: start: 20001201
  17. LUVOX [Concomitant]
     Dates: start: 20001218
  18. CHLORPROMAZINE HCL [Concomitant]
     Dates: start: 20010120
  19. VIOXX [Concomitant]
     Dates: start: 20020320
  20. AMBIEN [Concomitant]
     Dates: start: 20020204
  21. NEXIUM [Concomitant]
     Dates: start: 20020629
  22. PROMETHAZINE HCL [Concomitant]
     Dates: start: 20020422
  23. CELEXA [Concomitant]
     Dates: start: 20020715
  24. GABITRIL [Concomitant]
     Dates: start: 20020814
  25. MOBIC [Concomitant]
     Dates: start: 20021010
  26. LEXAPRO [Concomitant]
     Dates: start: 20020930
  27. GEODON [Concomitant]
     Dates: start: 20021231
  28. RANITIDINE HCL [Concomitant]
     Dates: start: 20021127
  29. AVELOX [Concomitant]
     Dates: start: 20020115
  30. HYOSCYAMINE SULFATE [Concomitant]
     Dates: start: 19981105
  31. NYSTATIN [Concomitant]
     Dates: start: 20030222

REACTIONS (1)
  - TARDIVE DYSKINESIA [None]
